FAERS Safety Report 6587693-8 (Version None)
Quarter: 2010Q1

REPORT INFORMATION
  Report Type: 
  Country: None (occurrence: None)
  Receive Date: 20100217
  Receipt Date: 20100217
  Transmission Date: 20100710
  Serious: Yes (Other)
  Sender: FDA-Public Use
  Company Number: None

PATIENT
  Age: 85 Year
  Sex: Female
  Weight: 63 kg

DRUGS (3)
  1. PROTONIX [Suspect]
     Indication: PROPHYLAXIS
     Dosage: 40MG DAILY IVDRIP
     Route: 041
     Dates: start: 20100203, end: 20100209
  2. PROTONIX [Suspect]
     Indication: STRESS ULCER
     Dosage: 40MG DAILY IVDRIP
     Route: 041
     Dates: start: 20100203, end: 20100209
  3. AMIODARONE HCL [Suspect]
     Indication: ATRIAL FIBRILLATION
     Dosage: 150MG/100ML PRN IV DRIP
     Route: 041
     Dates: start: 20100205, end: 20100205

REACTIONS (1)
  - PLATELET COUNT DECREASED [None]
